FAERS Safety Report 12214203 (Version 1)
Quarter: 2016Q1

REPORT INFORMATION
  Report Type: Spontaneous
  Country: US (occurrence: None)
  Receive Date: 20160325
  Receipt Date: 20160325
  Transmission Date: 20160526
  Serious: No
  Sender: FDA-Public Use
  Company Number: None

PATIENT
  Age: 28 Year
  Sex: Female

DRUGS (1)
  1. HARVONI [Suspect]
     Active Substance: LEDIPASVIR\SOFOSBUVIR
     Indication: HEPATITIS C
     Dosage: 90-400 TAB QD ORAL
     Route: 048
     Dates: start: 20160226

REACTIONS (2)
  - Fatigue [None]
  - Heart rate irregular [None]

NARRATIVE: CASE EVENT DATE: 201603
